FAERS Safety Report 6509769-3 (Version None)
Quarter: 2009Q4

REPORT INFORMATION
  Report Type: 
  Country: None (occurrence: None)
  Receive Date: 20091222
  Receipt Date: 20091210
  Transmission Date: 20100525
  Serious: Yes (Hospitalization, Other)
  Sender: FDA-Public Use
  Company Number: US-AMGEN-QUU373380

PATIENT
  Sex: Female

DRUGS (10)
  1. ENBREL [Suspect]
     Indication: ANKYLOSING SPONDYLITIS
     Dates: start: 20080701, end: 20080801
  2. ORENCIA [Suspect]
     Dates: start: 20090201
  3. KINERET [Concomitant]
     Dates: start: 20081101
  4. ARAVA [Concomitant]
     Dates: start: 20080101
  5. HUMIRA [Concomitant]
  6. METHOTREXATE [Concomitant]
     Dates: start: 20080101
  7. LISINOPRIL [Concomitant]
  8. METOPROLOL TARTRATE [Concomitant]
  9. NEXIUM [Concomitant]
  10. CYMBALTA [Concomitant]

REACTIONS (18)
  - ALOPECIA [None]
  - APHASIA [None]
  - ARTHRALGIA [None]
  - BURNING SENSATION [None]
  - DRUG INEFFECTIVE [None]
  - DYSPHAGIA [None]
  - DYSPNOEA [None]
  - FALL [None]
  - HEADACHE [None]
  - JOINT STIFFNESS [None]
  - MULTIPLE SCLEROSIS [None]
  - MUSCULOSKELETAL STIFFNESS [None]
  - NUCLEAR MAGNETIC RESONANCE IMAGING BRAIN ABNORMAL [None]
  - PAIN [None]
  - RESPIRATORY DISTRESS [None]
  - SECONDARY HYPERTENSION [None]
  - SINUS TACHYCARDIA [None]
  - SPONDYLOARTHROPATHY [None]
